FAERS Safety Report 7958887-1 (Version None)
Quarter: 2011Q4

REPORT INFORMATION
  Report Type: 
  Country: None (occurrence: None)
  Receive Date: 20111206
  Receipt Date: 20110709
  Transmission Date: 20120403
  Serious: Yes (Other)
  Sender: FDA-Public Use
  Company Number: US-GENZYME-LEUK-1000141

PATIENT

DRUGS (2)
  1. LEUKINE [Suspect]
     Indication: METASTATIC MALIGNANT MELANOMA
     Dosage: UNK
     Route: 065
     Dates: start: 20110630
  2. ANTINEOPLASTIC AGENTS [Suspect]
     Indication: PRODUCT USED FOR UNKNOWN INDICATION
     Dosage: UNK
     Route: 065

REACTIONS (6)
  - MUSCLE SPASMS [None]
  - BACK PAIN [None]
  - HYPERHIDROSIS [None]
  - FLUSHING [None]
  - DYSPNOEA [None]
  - CHEST DISCOMFORT [None]
